FAERS Safety Report 10311878 (Version 1)
Quarter: 2014Q3

REPORT INFORMATION
  Report Type: Spontaneous
  Country: US (occurrence: US)
  Receive Date: 20140717
  Receipt Date: 20140717
  Transmission Date: 20150326
  Serious: No
  Sender: FDA-Public Use
  Company Number: US-009507513-1407USA006670

PATIENT
  Age: 55 Year
  Sex: Male
  Weight: 71.4 kg

DRUGS (2)
  1. REBETOL [Suspect]
     Active Substance: RIBAVIRIN
     Indication: HEPATITIS C
     Dosage: 400 MG, BID (TAKE TWO CAPSULES BY MOUTH EVERY MORNING AND TAKE TWO CAPSULES EVERY EVENING)
     Route: 048
     Dates: start: 20120126
  2. VICTRELIS [Suspect]
     Active Substance: BOCEPREVIR
     Indication: HEPATITIS C
     Dosage: 800 MG, TID (TAKE FOUR CAPSULES BY MOUTH EVERY 8 HOURS)
     Route: 048
     Dates: start: 20120227

REACTIONS (3)
  - Leukopenia [Unknown]
  - Anaemia [Unknown]
  - Thrombocytopenia [Unknown]

NARRATIVE: CASE EVENT DATE: 20120209
